FAERS Safety Report 13360076 (Version 2)
Quarter: 2017Q2

REPORT INFORMATION
  Report Type: Report from Study
  Country: DE (occurrence: DE)
  Receive Date: 20170322
  Receipt Date: 20170406
  Transmission Date: 20170830
  Serious: Yes (Death, Hospitalization)
  Sender: FDA-Public Use
  Company Number: PHHY2017DE026847

PATIENT
  Sex: Female
  Weight: 68 kg

DRUGS (4)
  1. VOTRIENT [Suspect]
     Active Substance: PAZOPANIB HYDROCHLORIDE
     Dosage: 800 MG, QD
     Route: 048
     Dates: start: 20170303
  2. BUDESONIDE. [Concomitant]
     Active Substance: BUDESONIDE
     Indication: ASTHMA
     Dosage: 160 UG, BID
     Route: 055
  3. VOTRIENT [Suspect]
     Active Substance: PAZOPANIB HYDROCHLORIDE
     Indication: METASTATIC RENAL CELL CARCINOMA
     Dosage: 400 MG, QD
     Route: 048
     Dates: start: 20170213, end: 20170302
  4. FORMOTEROL RATIOPHARM [Concomitant]
     Indication: ASTHMA
     Dosage: 4.5 UG, BID
     Route: 055

REACTIONS (6)
  - Atrial fibrillation [Recovering/Resolving]
  - Malignant neoplasm progression [Fatal]
  - Dyspnoea [Recovering/Resolving]
  - Pleural effusion [Unknown]
  - Metastatic renal cell carcinoma [Fatal]
  - Back pain [Not Recovered/Not Resolved]

NARRATIVE: CASE EVENT DATE: 20170214
